FAERS Safety Report 22150572 (Version 2)
Quarter: 2023Q4

REPORT INFORMATION
  Report Type: Report from Study
  Country: US (occurrence: US)
  Receive Date: 20230329
  Receipt Date: 20231012
  Transmission Date: 20240110
  Serious: Yes (Hospitalization, Other)
  Sender: FDA-Public Use
  Company Number: US-TAKEDA-2021TUS065027

PATIENT
  Age: 61 Year
  Sex: Female

DRUGS (31)
  1. TEDUGLUTIDE [Suspect]
     Active Substance: TEDUGLUTIDE
     Indication: Short-bowel syndrome
     Dosage: 2.07 MILLIGRAM, QD
     Route: 058
     Dates: start: 20210714
  2. TEDUGLUTIDE [Suspect]
     Active Substance: TEDUGLUTIDE
     Indication: Short-bowel syndrome
     Dosage: 2.07 MILLIGRAM, QD
     Route: 058
     Dates: start: 20210714
  3. TEDUGLUTIDE [Suspect]
     Active Substance: TEDUGLUTIDE
     Indication: Short-bowel syndrome
     Dosage: 2.07 MILLIGRAM, QD
     Route: 058
     Dates: start: 20210714
  4. TEDUGLUTIDE [Suspect]
     Active Substance: TEDUGLUTIDE
     Indication: Short-bowel syndrome
     Dosage: 2.07 MILLIGRAM, QD
     Route: 058
     Dates: start: 20210714
  5. TEDUGLUTIDE [Suspect]
     Active Substance: TEDUGLUTIDE
     Indication: Crohn^s disease
     Dosage: 2.07 MILLIGRAM, QD
     Route: 058
     Dates: start: 20210928
  6. TEDUGLUTIDE [Suspect]
     Active Substance: TEDUGLUTIDE
     Indication: Crohn^s disease
     Dosage: 2.07 MILLIGRAM, QD
     Route: 058
     Dates: start: 20210928
  7. TEDUGLUTIDE [Suspect]
     Active Substance: TEDUGLUTIDE
     Indication: Crohn^s disease
     Dosage: 2.07 MILLIGRAM, QD
     Route: 058
     Dates: start: 20210928
  8. TEDUGLUTIDE [Suspect]
     Active Substance: TEDUGLUTIDE
     Indication: Crohn^s disease
     Dosage: 2.07 MILLIGRAM, QD
     Route: 058
     Dates: start: 20210928
  9. TEDUGLUTIDE [Suspect]
     Active Substance: TEDUGLUTIDE
     Indication: Intestinal fistula
     Dosage: 2.07 MILLIGRAM, QD
     Route: 058
     Dates: start: 20210930
  10. TEDUGLUTIDE [Suspect]
     Active Substance: TEDUGLUTIDE
     Indication: Intestinal fistula
     Dosage: 2.07 MILLIGRAM, QD
     Route: 058
     Dates: start: 20210930
  11. TEDUGLUTIDE [Suspect]
     Active Substance: TEDUGLUTIDE
     Indication: Intestinal fistula
     Dosage: 2.07 MILLIGRAM, QD
     Route: 058
     Dates: start: 20210930
  12. TEDUGLUTIDE [Suspect]
     Active Substance: TEDUGLUTIDE
     Indication: Intestinal fistula
     Dosage: 2.07 MILLIGRAM, QD
     Route: 058
     Dates: start: 20210930
  13. TEDUGLUTIDE [Suspect]
     Active Substance: TEDUGLUTIDE
     Dosage: 2.07 MILLIGRAM, QD
     Route: 058
     Dates: start: 202109
  14. TEDUGLUTIDE [Suspect]
     Active Substance: TEDUGLUTIDE
     Dosage: 2.07 MILLIGRAM, QD
     Route: 058
     Dates: start: 202109
  15. TEDUGLUTIDE [Suspect]
     Active Substance: TEDUGLUTIDE
     Dosage: 2.07 MILLIGRAM, QD
     Route: 058
     Dates: start: 202109
  16. TEDUGLUTIDE [Suspect]
     Active Substance: TEDUGLUTIDE
     Dosage: 2.07 MILLIGRAM, QD
     Route: 058
     Dates: start: 202109
  17. TEDUGLUTIDE [Suspect]
     Active Substance: TEDUGLUTIDE
     Dosage: 2.07 MILLIGRAM, QD
     Route: 058
     Dates: start: 20211001
  18. TEDUGLUTIDE [Suspect]
     Active Substance: TEDUGLUTIDE
     Dosage: 2.07 MILLIGRAM, QD
     Route: 058
     Dates: start: 20211001
  19. TEDUGLUTIDE [Suspect]
     Active Substance: TEDUGLUTIDE
     Dosage: 2.07 MILLIGRAM, QD
     Route: 058
     Dates: start: 20211001
  20. TEDUGLUTIDE [Suspect]
     Active Substance: TEDUGLUTIDE
     Dosage: 2.07 MILLIGRAM, QD
     Route: 058
     Dates: start: 20211001
  21. TEDUGLUTIDE [Suspect]
     Active Substance: TEDUGLUTIDE
     Dosage: 2.07 MILLIGRAM, QD
     Route: 058
     Dates: start: 20211005
  22. TEDUGLUTIDE [Suspect]
     Active Substance: TEDUGLUTIDE
     Dosage: 2.07 MILLIGRAM, QD
     Route: 058
     Dates: start: 20211005
  23. TEDUGLUTIDE [Suspect]
     Active Substance: TEDUGLUTIDE
     Dosage: 2.07 MILLIGRAM, QD
     Route: 058
     Dates: start: 20211005
  24. TEDUGLUTIDE [Suspect]
     Active Substance: TEDUGLUTIDE
     Dosage: 2.07 MILLIGRAM, QD
     Route: 058
     Dates: start: 20211005
  25. TEDUGLUTIDE [Suspect]
     Active Substance: TEDUGLUTIDE
     Dosage: 0.21 MILLILITER, QD
     Route: 058
  26. TEDUGLUTIDE [Suspect]
     Active Substance: TEDUGLUTIDE
     Dosage: 0.21 MILLILITER, QD
     Route: 058
  27. TEDUGLUTIDE [Suspect]
     Active Substance: TEDUGLUTIDE
     Dosage: 0.21 MILLILITER, QD
     Route: 058
  28. TEDUGLUTIDE [Suspect]
     Active Substance: TEDUGLUTIDE
     Dosage: 0.21 MILLILITER, QD
     Route: 058
  29. STELARA [Suspect]
     Active Substance: USTEKINUMAB
     Indication: Product used for unknown indication
     Dosage: UNK
     Route: 065
  30. LASIX [Concomitant]
     Active Substance: FUROSEMIDE
     Indication: Oedema peripheral
     Dosage: UNK
     Route: 065
  31. SKYRIZI [Concomitant]
     Active Substance: RISANKIZUMAB-RZAA
     Dosage: UNK
     Route: 065

REACTIONS (13)
  - Intestinal haemorrhage [Unknown]
  - Dyspepsia [Unknown]
  - Pain [Unknown]
  - Weight increased [Unknown]
  - COVID-19 [Recovered/Resolved]
  - Oedema [Unknown]
  - Oedema peripheral [Not Recovered/Not Resolved]
  - Decreased appetite [Unknown]
  - Nausea [Unknown]
  - Vomiting [Unknown]
  - Hypervolaemia [Unknown]
  - Abdominal pain [Unknown]
  - Product dose omission issue [Unknown]

NARRATIVE: CASE EVENT DATE: 20220107
